FAERS Safety Report 5762358-0 (Version None)
Quarter: 2008Q2

REPORT INFORMATION
  Report Type: 
  Country: None (occurrence: None)
  Receive Date: 20080609
  Receipt Date: 20080528
  Transmission Date: 20081010
  Serious: Yes (Other)
  Sender: FDA-Public Use
  Company Number: ES-AMGEN-UK283691

PATIENT
  Age: 65 Year
  Sex: Female
  Weight: 57.5 kg

DRUGS (1)
  1. FILGRASTIM [Suspect]
     Indication: BLOOD STEM CELL HARVEST
     Route: 058
     Dates: start: 20060406, end: 20060411

REACTIONS (3)
  - IRON METABOLISM DISORDER [None]
  - MYELODYSPLASTIC SYNDROME [None]
  - THROMBOCYTOPENIA [None]
